FAERS Safety Report 6161084-6 (Version None)
Quarter: 2009Q2

REPORT INFORMATION
  Report Type: 
  Country: None (occurrence: None)
  Receive Date: 20090421
  Receipt Date: 20090415
  Transmission Date: 20091009
  Serious: Yes (Other)
  Sender: FDA-Public Use
  Company Number: US-RANBAXY-2009US-23401

PATIENT

DRUGS (1)
  1. ISOTRETINOIN [Suspect]
     Indication: ACNE
     Dosage: UNK, UNK
     Route: 065

REACTIONS (4)
  - DEPRESSION [None]
  - ERECTILE DYSFUNCTION [None]
  - SUICIDAL IDEATION [None]
  - SUICIDE ATTEMPT [None]
